FAERS Safety Report 5902056-3 (Version None)
Quarter: 2008Q3

REPORT INFORMATION
  Report Type: 
  Country: None (occurrence: None)
  Receive Date: 20080909
  Receipt Date: 20080109
  Transmission Date: 20090109
  Serious: Yes (Other)
  Sender: FDA-Public Use
  Company Number: US-WYE-H02102408

PATIENT
  Sex: Female

DRUGS (2)
  1. ADVIL [Suspect]
     Indication: THROMBOSIS
     Dosage: 800 MG, THREE TIMES DAILY PER PHYSICIAN, ORAL
     Route: 048
     Dates: start: 20071205
  2. CAFFEINE CITRATE [Concomitant]

REACTIONS (1)
  - CARDIAC FLUTTER [None]
